FAERS Safety Report 22168963 (Version 1)
Quarter: 2023Q2

REPORT INFORMATION
  Report Type: Spontaneous
  Country: CN (occurrence: CN)
  Receive Date: 20230403
  Receipt Date: 20230403
  Transmission Date: 20230722
  Serious: Yes (Other)
  Sender: FDA-Public Use
  Company Number: CN-STRIDES ARCOLAB LIMITED-2023SP004584

PATIENT
  Sex: Female

DRUGS (3)
  1. PREDNISOLONE [Suspect]
     Active Substance: PREDNISOLONE
     Indication: Product used for unknown indication
     Dosage: UNK, (MOTHER RECEIVED 5 MILLIGRAM, PER DAY)
     Route: 064
     Dates: start: 2022
  2. HYDROXYCHLOROQUINE [Suspect]
     Active Substance: HYDROXYCHLOROQUINE
     Indication: Product used for unknown indication
     Dosage: UNK, (MOTHER RECEIVED 400 MILLIGRAM, PER DAY)
     Route: 064
     Dates: start: 2022
  3. ASPIRIN [Suspect]
     Active Substance: ASPIRIN
     Indication: Product used for unknown indication
     Dosage: UNK (MOTHER RECEIVED 100 MILLIGRAM, PER DAY)
     Route: 064
     Dates: start: 2022

REACTIONS (3)
  - Premature baby [Unknown]
  - Low birth weight baby [Unknown]
  - Foetal exposure during pregnancy [Unknown]

NARRATIVE: CASE EVENT DATE: 20220101
